FAERS Safety Report 12667822 (Version 1)
Quarter: 2016Q3

REPORT INFORMATION
  Report Type: Spontaneous
  Country: US (occurrence: US)
  Receive Date: 20160819
  Receipt Date: 20160819
  Transmission Date: 20161109
  Serious: No
  Sender: FDA-Public Use
  Company Number: US-BAYER-2016-161252

PATIENT
  Sex: Male

DRUGS (1)
  1. GADAVIST [Suspect]
     Active Substance: GADOBUTROL
     Indication: NUCLEAR MAGNETIC RESONANCE IMAGING BRAIN
     Dosage: 7 ML, ONCE
     Dates: start: 20160815, end: 20160815

REACTIONS (2)
  - Vomiting [Recovered/Resolved]
  - Incorrect dose administered [None]

NARRATIVE: CASE EVENT DATE: 20160815
